FAERS Safety Report 5464178-3 (Version None)
Quarter: 2007Q3

REPORT INFORMATION
  Report Type: 
  Country: None (occurrence: None)
  Receive Date: 20070921
  Receipt Date: 20070913
  Transmission Date: 20080115
  Serious: Yes (Other)
  Sender: FDA-Public Use
  Company Number: US-ASTRAZENECA-2007UW21729

PATIENT
  Age: 15 Year
  Sex: Male
  Weight: 81.6 kg

DRUGS (4)
  1. PULMICORT [Suspect]
     Indication: ASTHMA
     Dosage: 1 PUFF QD
     Route: 055
     Dates: start: 20060101, end: 20070101
  2. ALBUTEROL [Concomitant]
  3. VITAMINS [Concomitant]
  4. ADVIL LIQUI-GELS [Concomitant]

REACTIONS (2)
  - CONTUSION [None]
  - PLATELET COUNT DECREASED [None]
